FAERS Safety Report 21197847 (Version 2)
Quarter: 2022Q3

REPORT INFORMATION
  Report Type: Report from Study
  Country: US (occurrence: US)
  Receive Date: 20220810
  Receipt Date: 20220824
  Transmission Date: 20221026
  Serious: Yes (Other)
  Sender: FDA-Public Use
  Company Number: US-INCYTE CORPORATION-2022IN006555

PATIENT

DRUGS (2)
  1. JAKAFI [Suspect]
     Active Substance: RUXOLITINIB
     Indication: Myelofibrosis
     Dosage: 10 TABLETS A WEEK (20MG ON MONDAYS, WEDNESDAYS, FRIDAYS, AND SUNDAYS; 20MG TWICE DAILY ON TUESDAYS,
     Route: 065
     Dates: start: 202104
  2. JAKAFI [Suspect]
     Active Substance: RUXOLITINIB
     Dosage: 20 MILLIGRAM, QOD
     Route: 065
     Dates: start: 20220519

REACTIONS (4)
  - Thrombocytopenia [Recovered/Resolved]
  - Full blood count decreased [Unknown]
  - Bronchitis [Unknown]
  - Speech disorder [Unknown]

NARRATIVE: CASE EVENT DATE: 20220518
